FAERS Safety Report 7458834-5 (Version None)
Quarter: 2011Q2

REPORT INFORMATION
  Report Type: 
  Country: None (occurrence: None)
  Receive Date: 20110504
  Receipt Date: 20110502
  Transmission Date: 20111010
  Serious: Yes (Other)
  Sender: FDA-Public Use
  Company Number: US-AMGEN-QUU394785

PATIENT
  Age: 89 Year
  Sex: Female

DRUGS (2)
  1. NPLATE [Suspect]
     Indication: IDIOPATHIC THROMBOCYTOPENIC PURPURA
     Dosage: UNK UNK, UNK
     Dates: start: 20081114
  2. NPLATE [Suspect]
     Dates: start: 20081114

REACTIONS (3)
  - RENAL FAILURE ACUTE [None]
  - PNEUMONIA [None]
  - CARDIAC FAILURE CONGESTIVE [None]
